FAERS Safety Report 8898936 (Version 1)
Quarter: 2012Q4

REPORT INFORMATION
  Report Type: 
  Country: US (occurrence: US)
  Receive Date: 20121109
  Receipt Date: 20121109
  Transmission Date: 20130627
  Serious: Yes (Hospitalization)
  Sender: FDA-Public Use
  Company Number: US-BAYER-2012-088833

PATIENT
  Age: 83 Year
  Sex: Male
  Weight: 79.38 kg

DRUGS (4)
  1. XARELTO [Suspect]
     Indication: TOTAL HIP REPLACEMENT
     Dosage: 10 mg, QD
     Route: 048
     Dates: start: 20120801
  2. XARELTO [Interacting]
     Indication: VENOUS THROMBOEMBOLISM PROPHYLAXIS
     Dosage: 10 mg, QD
     Route: 048
     Dates: start: 2012
  3. XARELTO [Interacting]
     Indication: VENOUS THROMBOEMBOLISM PROPHYLAXIS
  4. ACETYLSALICYLIC ACID({=100 MG) [Interacting]

REACTIONS (1)
  - Rectal haemorrhage [Recovering/Resolving]
